FAERS Safety Report 10910944 (Version 1)
Quarter: 2015Q1

REPORT INFORMATION
  Report Type: Spontaneous
  Country: CH (occurrence: CH)
  Receive Date: 20150312
  Receipt Date: 20150312
  Transmission Date: 20150721
  Serious: Yes (Other)
  Sender: FDA-Public Use
  Company Number: PHHY2015CH028305

PATIENT
  Sex: Female
  Weight: 64 kg

DRUGS (2)
  1. HERCEPTIN [Concomitant]
     Active Substance: TRASTUZUMAB
     Indication: PRODUCT USED FOR UNKNOWN INDICATION
     Dosage: 126 MG, QW
     Route: 042
     Dates: start: 20150116
  2. PACLITAXEL SANDOZ [Suspect]
     Active Substance: PACLITAXEL
     Indication: PRODUCT USED FOR UNKNOWN INDICATION
     Dosage: 134 MG, QW
     Route: 042
     Dates: start: 20150116

REACTIONS (3)
  - Nail discolouration [Unknown]
  - Onycholysis [Unknown]
  - Nail disorder [Unknown]

NARRATIVE: CASE EVENT DATE: 201501
